FAERS Safety Report 12728880 (Version 14)
Quarter: 2018Q2

REPORT INFORMATION
  Report Type: Spontaneous
  Country: US (occurrence: US)
  Receive Date: 20160909
  Receipt Date: 20180426
  Transmission Date: 20180711
  Serious: Yes (Other)
  Sender: FDA-Public Use
  Company Number: US-PFIZER INC-2016417403

PATIENT
  Age: 68 Year
  Sex: Female

DRUGS (3)
  1. XELJANZ [Suspect]
     Active Substance: TOFACITINIB CITRATE
     Dosage: 5 MG, UNK
     Dates: start: 201801
  2. XELJANZ [Suspect]
     Active Substance: TOFACITINIB CITRATE
     Indication: RHEUMATOID ARTHRITIS
     Dosage: 5 MG, 2X/DAY
     Dates: start: 20130610, end: 201705
  3. XELJANZ [Suspect]
     Active Substance: TOFACITINIB CITRATE
     Dosage: 5 MG, UNK
     Dates: start: 201311

REACTIONS (13)
  - Urinary tract infection [Not Recovered/Not Resolved]
  - Influenza [Unknown]
  - Pruritus generalised [Unknown]
  - Wound infection [Unknown]
  - Skin lesion [Unknown]
  - Drug dose omission [Unknown]
  - Nasopharyngitis [Unknown]
  - Pneumonia [Recovering/Resolving]
  - Laryngitis [Unknown]
  - Malaise [Unknown]
  - Decubitus ulcer [Unknown]
  - Pulmonary congestion [Unknown]
  - Lymphoedema [Unknown]

NARRATIVE: CASE EVENT DATE: 20160101
